FAERS Safety Report 4524398-9 (Version None)
Quarter: 2004Q4

REPORT INFORMATION
  Report Type: 
  Country: None (occurrence: None)
  Receive Date: 20041123
  Receipt Date: 20040401
  Transmission Date: 20050328
  Serious: Yes (Life-Threatening)
  Sender: FDA-Public Use
  Company Number: NSADSS2001035507

PATIENT
  Age: 62 Year
  Sex: Female
  Weight: 86.1834 kg

DRUGS (11)
  1. PROPULSID [Suspect]
     Indication: BARRETT'S OESOPHAGUS
     Dosage: SEE IMAGE
     Route: 048
     Dates: start: 19980217, end: 20000201
  2. PROPULSID [Suspect]
     Indication: DYSPEPSIA
     Dosage: SEE IMAGE
     Route: 048
     Dates: start: 19980217, end: 20000201
  3. PROPULSID [Suspect]
     Indication: GASTROOESOPHAGEAL REFLUX DISEASE
     Dosage: SEE IMAGE
     Route: 048
     Dates: start: 19980217, end: 20000201
  4. PROPULSID [Suspect]
     Indication: BARRETT'S OESOPHAGUS
     Dosage: SEE IMAGE
     Route: 048
     Dates: start: 19960513
  5. PROPULSID [Suspect]
     Indication: DYSPEPSIA
     Dosage: SEE IMAGE
     Route: 048
     Dates: start: 19960513
  6. PROPULSID [Suspect]
     Indication: GASTROOESOPHAGEAL REFLUX DISEASE
     Dosage: SEE IMAGE
     Route: 048
     Dates: start: 19960513
  7. AMITRIPTYLINE HCL [Concomitant]
  8. LOVASTATIN [Concomitant]
  9. SYNTHROID [Concomitant]
  10. LESCOL [Concomitant]
  11. PRILOSEC [Concomitant]

REACTIONS (5)
  - DEPRESSION [None]
  - DIZZINESS [None]
  - ELECTROCARDIOGRAM QT PROLONGED [None]
  - MEDICATION ERROR [None]
  - MEMORY IMPAIRMENT [None]
